FAERS Safety Report 17333049 (Version 2)
Quarter: 2020Q1

REPORT INFORMATION
  Report Type: Spontaneous
  Country: IE (occurrence: IE)
  Receive Date: 20200128
  Receipt Date: 20200204
  Transmission Date: 20200409
  Serious: Yes (Hospitalization)
  Sender: FDA-Public Use
  Company Number: IE-JNJFOC-20200129685

PATIENT
  Age: 89 Year
  Sex: Female

DRUGS (4)
  1. STELARA [Suspect]
     Active Substance: USTEKINUMAB
     Dosage: INJECTION INTO THIGH - DOSE INCREASED TO 90MG (PATIENT STATED THAT THEY WERE NOT TOLD THAT DOSE W...
     Route: 030
     Dates: start: 20191219
  2. STELARA [Suspect]
     Active Substance: USTEKINUMAB
     Indication: PRODUCT USED FOR UNKNOWN INDICATION
     Dosage: INJECTION INTO THIGH
     Route: 030
     Dates: start: 20190626
  3. STELARA [Suspect]
     Active Substance: USTEKINUMAB
     Dosage: INJECTION INTO THIGH
     Route: 030
     Dates: start: 20190918
  4. STELARA [Suspect]
     Active Substance: USTEKINUMAB
     Dosage: INJECTION INTO THIGH
     Route: 030
     Dates: start: 20190529

REACTIONS (5)
  - Incorrect route of product administration [Unknown]
  - Malaise [Unknown]
  - Sensory disturbance [Recovered/Resolved]
  - Road traffic accident [Recovered/Resolved]
  - Off label use [Unknown]

NARRATIVE: CASE EVENT DATE: 20191220
